FAERS Safety Report 10063563 (Version 3)
Quarter: 2014Q2

REPORT INFORMATION
  Report Type: Spontaneous
  Country: IT (occurrence: IT)
  Receive Date: 20140407
  Receipt Date: 20140512
  Transmission Date: 20141212
  Serious: Yes (Other)
  Sender: FDA-Public Use
  Company Number: PHHY2013IT146329

PATIENT
  Age: 87 Year
  Sex: Female

DRUGS (4)
  1. SINTROM [Suspect]
     Dosage: 11 MG, QW
     Route: 048
     Dates: start: 20101022
  2. SINTROM [Suspect]
     Dosage: UNK UKN, UNK
  3. OPTALIDON [Suspect]
     Indication: PAIN
     Dosage: 1 DF, DAILY
     Route: 048
     Dates: start: 20131020, end: 20131024
  4. AMOXICILLIN [Suspect]
     Dosage: 1 G, DAILY
     Route: 048
     Dates: start: 20131020, end: 20131024

REACTIONS (2)
  - Rectal haemorrhage [Recovered/Resolved]
  - International normalised ratio increased [Recovered/Resolved]
